FAERS Safety Report 10554572 (Version 1)
Quarter: 2014Q4

REPORT INFORMATION
  Report Type: Spontaneous
  Country: US (occurrence: US)
  Receive Date: 20141030
  Receipt Date: 20141030
  Transmission Date: 20150529
  Serious: Yes (Hospitalization, Disabling, Other)
  Sender: FDA-Public Use
  Company Number: US-GLAXOSMITHKLINE-US2014GSK013964

PATIENT
  Age: 47 Year
  Sex: Female

DRUGS (19)
  1. PREDNISONE. [Concomitant]
     Active Substance: PREDNISONE
  2. TYLENOL [Concomitant]
     Active Substance: ACETAMINOPHEN
  3. HYDROXYCHLOROQUINE [Concomitant]
     Active Substance: HYDROXYCHLOROQUINE
  4. CLOPIDOGREL [Concomitant]
     Active Substance: CLOPIDOGREL BISULFATE
  5. CYCLOBENZAPRINE [Concomitant]
     Active Substance: CYCLOBENZAPRINE
  6. SINGULAIR [Concomitant]
     Active Substance: MONTELUKAST SODIUM
  7. ADVAIR HFA [Concomitant]
     Active Substance: FLUTICASONE PROPIONATE\SALMETEROL XINAFOATE
  8. MEDICATION UNKNOWN [Concomitant]
     Active Substance: UNSPECIFIED INGREDIENT
  9. ALBUTEROL. [Concomitant]
     Active Substance: ALBUTEROL
  10. NEXIUM [Concomitant]
     Active Substance: ESOMEPRAZOLE MAGNESIUM
  11. MEGESTROL [Concomitant]
     Active Substance: MEGESTROL
  12. BENLYSTA [Suspect]
     Active Substance: BELIMUMAB
     Indication: SYSTEMIC LUPUS ERYTHEMATOSUS
     Dosage: 10 MG/KG, SINGLE
     Route: 042
     Dates: start: 20141018, end: 20141018
  13. METHOTREXATE [Concomitant]
     Active Substance: METHOTREXATE
  14. ONDANSETRON [Concomitant]
     Active Substance: ONDANSETRON
  15. FOLIC ACID. [Concomitant]
     Active Substance: FOLIC ACID
  16. MYCOPHENOLATE [Concomitant]
     Active Substance: MYCOPHENOLIC ACID
  17. SOLU-MEDROL [Concomitant]
     Active Substance: METHYLPREDNISOLONE SODIUM SUCCINATE
  18. ACETAMINOPHEN. [Concomitant]
     Active Substance: ACETAMINOPHEN
  19. BENADRYL [Concomitant]
     Active Substance: DIPHENHYDRAMINE HYDROCHLORIDE

REACTIONS (6)
  - Oxygen saturation decreased [Unknown]
  - Throat irritation [Unknown]
  - Asthma [Unknown]
  - Dysgeusia [Unknown]
  - Vomiting [Unknown]
  - Throat tightness [Unknown]

NARRATIVE: CASE EVENT DATE: 20141018
